FAERS Safety Report 4277704-7 (Version None)
Quarter: 2004Q1

REPORT INFORMATION
  Report Type: 
  Country: None (occurrence: None)
  Receive Date: 20040121
  Receipt Date: 20040105
  Transmission Date: 20041129
  Serious: Yes (Hospitalization, Other)
  Sender: FDA-Public Use
  Company Number: 8004851

PATIENT
  Age: 64 Year
  Sex: Male

DRUGS (3)
  1. KEPPRA [Suspect]
     Indication: CONVULSION
     Dosage: 1750 MG 2/D PO
     Route: 048
     Dates: start: 20031001, end: 20031209
  2. PHENOBARBITONE [Concomitant]
  3. VALPROATE SODIUM [Concomitant]

REACTIONS (3)
  - CONFUSIONAL STATE [None]
  - NEUTROPENIA [None]
  - THROMBOCYTOPENIA [None]
